FAERS Safety Report 15901437 (Version 3)
Quarter: 2019Q1

REPORT INFORMATION
  Report Type: Spontaneous
  Country: PL (occurrence: PL)
  Receive Date: 20190201
  Receipt Date: 20190211
  Transmission Date: 20190417
  Serious: Yes (Other)
  Sender: FDA-Public Use
  Company Number: PL-PFIZER INC-2019031152

PATIENT
  Age: 47 Year
  Sex: Male

DRUGS (26)
  1. PREDNISONE. [Suspect]
     Active Substance: PREDNISONE
     Dosage: IN A TAPERING DOSAGE (65-15 MG)
     Dates: start: 201504, end: 201605
  2. METHYLPREDNISOLONE. [Suspect]
     Active Substance: METHYLPREDNISOLONE
     Indication: PULMONARY ALVEOLAR HAEMORRHAGE
     Dosage: THREE PULSES (750-1000-1000 MG)
     Route: 065
     Dates: start: 201312
  3. PREDNISONE. [Suspect]
     Active Substance: PREDNISONE
     Indication: PULMONARY ALVEOLAR HAEMORRHAGE
     Dosage: 80 MG, DAILY
     Route: 048
     Dates: start: 201312
  4. PREDNISONE. [Suspect]
     Active Substance: PREDNISONE
     Dosage: 100 MG, DAILY
     Dates: start: 201502
  5. PREDNISONE. [Suspect]
     Active Substance: PREDNISONE
     Dosage: 40 MG, DAILY
     Dates: start: 201605
  6. MYCOPHENOLIC ACID. [Concomitant]
     Active Substance: MYCOPHENOLIC ACID
     Dosage: 3 G, DAILY
     Dates: start: 201610, end: 201701
  7. WARFARIN [Concomitant]
     Active Substance: WARFARIN
     Indication: DEEP VEIN THROMBOSIS
     Dosage: UNK
  8. PREDNISONE. [Suspect]
     Active Substance: PREDNISONE
     Dosage: 60 MG, 1X/DAY
     Dates: start: 201408
  9. PREDNISONE. [Suspect]
     Active Substance: PREDNISONE
     Dosage: 30 MG, DAILY
     Dates: start: 201608
  10. MYCOPHENOLIC ACID. [Concomitant]
     Active Substance: MYCOPHENOLIC ACID
     Dosage: 2 G, 1X/DAY
     Dates: start: 201502, end: 201610
  11. WARFARIN [Concomitant]
     Active Substance: WARFARIN
     Indication: PULMONARY EMBOLISM
  12. PREDNISONE. [Suspect]
     Active Substance: PREDNISONE
     Dosage: IN TAPERING DOSAGE (80-20 MG)
     Route: 065
     Dates: start: 201401, end: 201407
  13. PREDNISONE. [Suspect]
     Active Substance: PREDNISONE
     Dosage: IN A TAPERING DOSAGE (55-25 MG)
     Dates: start: 201408, end: 201502
  14. PREDNISONE. [Suspect]
     Active Substance: PREDNISONE
     Dosage: 75 MG, DAILY
     Dates: start: 201504
  15. PREDNISONE. [Suspect]
     Active Substance: PREDNISONE
     Dosage: IN A TAPERING DOSAGE (30-25 MG)
     Dates: start: 201608, end: 201610
  16. MYCOPHENOLIC ACID. [Concomitant]
     Active Substance: MYCOPHENOLIC ACID
     Indication: PULMONARY ALVEOLAR HAEMORRHAGE
     Dosage: 1 G, 1X/DAY
     Dates: start: 201408, end: 201502
  17. CYCLOPHOSPHAMIDE. [Concomitant]
     Active Substance: CYCLOPHOSPHAMIDE
     Indication: PULMONARY ALVEOLAR HAEMORRHAGE
     Dosage: 1.5 G, EVERY 4 WEEKS (SIX PULSES)
     Dates: start: 201401, end: 201407
  18. CLARITHROMYCIN. [Concomitant]
     Active Substance: CLARITHROMYCIN
     Indication: PULMONARY ALVEOLAR HAEMORRHAGE
     Dosage: UNK
  19. FLUCONAZOLE. [Concomitant]
     Active Substance: FLUCONAZOLE
     Indication: PULMONARY ALVEOLAR HAEMORRHAGE
     Dosage: UNK
  20. IMMUNOGLOBULIN G HUMAN [Concomitant]
     Active Substance: HUMAN IMMUNOGLOBULIN G
     Indication: PULMONARY ALVEOLAR HAEMORRHAGE
     Dosage: 50 G, DAILY FOR 5 DAYS
     Route: 042
     Dates: start: 201408
  21. METHYLPREDNISOLONE. [Suspect]
     Active Substance: METHYLPREDNISOLONE
     Dosage: THREE PULSES (500 MG EACH)
     Dates: start: 201408
  22. CYCLOPHOSPHAMIDE. [Concomitant]
     Active Substance: CYCLOPHOSPHAMIDE
     Dosage: UNK
  23. PREDNISONE. [Suspect]
     Active Substance: PREDNISONE
     Dosage: IN A TAPERING DOSAGE (25-20 MG)
     Dates: start: 201610, end: 201701
  24. PREDNISONE. [Suspect]
     Active Substance: PREDNISONE
     Dosage: IN A TAPERING DOSAGE (90-75 MG)
     Dates: start: 201502, end: 201504
  25. PREDNISONE. [Suspect]
     Active Substance: PREDNISONE
     Dosage: IN A TAPERING DOSAGE (40-20 MG)
     Dates: start: 201605, end: 201608
  26. AMOXICILLIN CLAVULANIC ACID [Concomitant]
     Active Substance: AMOXICILLIN\CLAVULANIC ACID
     Indication: PULMONARY ALVEOLAR HAEMORRHAGE
     Dosage: UNK

REACTIONS (5)
  - Vitamin D deficiency [Unknown]
  - Product use in unapproved indication [Unknown]
  - Pneumonia [Unknown]
  - Osteoporosis [Unknown]
  - Pathological fracture [Unknown]
